FAERS Safety Report 5085979-X (Version None)
Quarter: 2006Q3

REPORT INFORMATION
  Report Type: 
  Country: None (occurrence: None)
  Receive Date: 20060817
  Receipt Date: 20060802
  Transmission Date: 20061208
  Serious: Yes (Hospitalization)
  Sender: FDA-Public Use
  Company Number: 2006095191

PATIENT
  Age: 69 Year
  Sex: Male

DRUGS (3)
  1. EPIRUBICIN [Suspect]
     Indication: DRUG USE FOR UNKNOWN INDICATION
     Dosage: SEE IMAGE
  2. IODIZED OIL (IODIZED OIL) [Suspect]
     Indication: DRUG USE FOR UNKNOWN INDICATION
     Dosage: SEE IMAGE
  3. ABSORBABLE GELATIN SPONGE (ABSORBABLE GELATIN SPONGE) [Concomitant]

REACTIONS (4)
  - BACK PAIN [None]
  - BILE DUCT OBSTRUCTION [None]
  - BLOOD AMYLASE INCREASED [None]
  - JAUNDICE [None]
